FAERS Safety Report 11768933 (Version 1)
Quarter: 2015Q4

REPORT INFORMATION
  Report Type: Spontaneous
  Country: AU (occurrence: AU)
  Receive Date: 20151123
  Receipt Date: 20151123
  Transmission Date: 20160304
  Serious: Yes (Other)
  Sender: FDA-Public Use
  Company Number: AU-BRISTOL-MYERS SQUIBB COMPANY-BMS-2015-079970

PATIENT
  Age: 79 Year
  Sex: Female

DRUGS (1)
  1. ELIQUIS [Suspect]
     Active Substance: APIXABAN
     Indication: THROMBOSIS PROPHYLAXIS
     Dosage: 1 TAB, QD
     Route: 048
     Dates: start: 201508

REACTIONS (4)
  - Squamous cell carcinoma [Unknown]
  - Alopecia [Unknown]
  - Off label use [Unknown]
  - Rash pruritic [Unknown]
